FAERS Safety Report 7300405-5 (Version None)
Quarter: 2011Q1

REPORT INFORMATION
  Report Type: 
  Country: None (occurrence: None)
  Receive Date: 20110217
  Receipt Date: 20110203
  Transmission Date: 20110831
  Serious: Yes (Other)
  Sender: FDA-Public Use
  Company Number: PHHY2011DE09626

PATIENT
  Age: 38 Year
  Sex: Male

DRUGS (2)
  1. DIOVAN [Concomitant]
  2. TASIGNA [Suspect]
     Indication: CHRONIC MYELOID LEUKAEMIA
     Dosage: 200 MG, TID
     Route: 048
     Dates: start: 20110101

REACTIONS (9)
  - GENERAL PHYSICAL HEALTH DETERIORATION [None]
  - SLEEP DISORDER [None]
  - PRURITUS [None]
  - DIARRHOEA [None]
  - DRY MOUTH [None]
  - INCORRECT DRUG ADMINISTRATION DURATION [None]
  - VISUAL IMPAIRMENT [None]
  - LACRIMAL DISORDER [None]
  - MUSCLE SPASMS [None]
